FAERS Safety Report 15704082 (Version 1)
Quarter: 2018Q4

REPORT INFORMATION
  Report Type: Spontaneous
  Country: GB (occurrence: GB)
  Receive Date: 20181210
  Receipt Date: 20181210
  Transmission Date: 20190205
  Serious: Yes (Other)
  Sender: FDA-Public Use
  Company Number: GB-PFIZER INC-2018501026

PATIENT
  Age: 66 Year
  Sex: Male

DRUGS (2)
  1. GENTAMICIN SULFATE. [Suspect]
     Active Substance: GENTAMICIN SULFATE
     Dosage: UNK
     Route: 030
  2. CIPROFLOXACIN. [Suspect]
     Active Substance: CIPROFLOXACIN
     Dosage: UNK
     Route: 030

REACTIONS (2)
  - Sepsis [Unknown]
  - Incorrect product dosage form administered [Unknown]

NARRATIVE: CASE EVENT DATE: 20180324
